FAERS Safety Report 17140228 (Version 7)
Quarter: 2021Q2

REPORT INFORMATION
  Report Type: Report from Study
  Country: AR (occurrence: AR)
  Receive Date: 20191211
  Receipt Date: 20210614
  Transmission Date: 20210716
  Serious: Yes (Death, Other)
  Sender: FDA-Public Use
  Company Number: NVSC2019AR063916

PATIENT
  Age: 61 Year
  Sex: Male

DRUGS (5)
  1. MEKINIST [Suspect]
     Active Substance: TRAMETINIB DIMETHYL SULFOXIDE
     Indication: METASTATIC MALIGNANT MELANOMA
     Dosage: 2 MG, QD
     Route: 048
     Dates: start: 20190905
  2. TELMISARTAN. [Concomitant]
     Active Substance: TELMISARTAN
     Indication: PRODUCT USED FOR UNKNOWN INDICATION
     Dosage: 40 MG, QD
     Route: 065
  3. CARVEDILOL. [Concomitant]
     Active Substance: CARVEDILOL
     Indication: PRODUCT USED FOR UNKNOWN INDICATION
     Dosage: 6.25 MG, QD
     Route: 065
  4. AMLODIPINE [Concomitant]
     Active Substance: AMLODIPINE BESYLATE
     Indication: PRODUCT USED FOR UNKNOWN INDICATION
     Dosage: 10 MG, QD
     Route: 065
  5. TAFINLAR [Suspect]
     Active Substance: DABRAFENIB MESYLATE
     Indication: METASTATIC MALIGNANT MELANOMA
     Dosage: 150 MG, BID
     Route: 048
     Dates: start: 20190905

REACTIONS (14)
  - Cerebrovascular accident [Recovering/Resolving]
  - Brain neoplasm [Unknown]
  - Neoplasm progression [Unknown]
  - Death [Fatal]
  - Brain oedema [Unknown]
  - Dyslipidaemia [Unknown]
  - Muscular weakness [Recovered/Resolved]
  - Nephrolithiasis [Recovering/Resolving]
  - Discomfort [Recovering/Resolving]
  - Neoplasm [Unknown]
  - Ureteric perforation [Recovering/Resolving]
  - Oral discomfort [Recovering/Resolving]
  - Melanoma recurrent [Unknown]
  - Haematuria [Recovering/Resolving]

NARRATIVE: CASE EVENT DATE: 201909
